FAERS Safety Report 4314777-7 (Version None)
Quarter: 2004Q1

REPORT INFORMATION
  Report Type: 
  Country: None (occurrence: None)
  Receive Date: 20040308
  Receipt Date: 20040223
  Transmission Date: 20041129
  Serious: Yes (Life-Threatening, Hospitalization, Disabling)
  Sender: FDA-Public Use
  Company Number: 2004AP00596

PATIENT
  Age: 54 Year
  Sex: Male

DRUGS (11)
  1. IRESSA [Suspect]
     Indication: NON-SMALL CELL LUNG CANCER
     Dosage: 250 MG DAILY PO
     Route: 048
     Dates: start: 20040121, end: 20040201
  2. MAGLAX [Concomitant]
  3. MS CONTIN [Concomitant]
  4. NOVAMIN [Concomitant]
  5. SAWACILLIN [Concomitant]
  6. COLD RELIEF [Concomitant]
  7. CISPLATIN [Concomitant]
  8. ETPOSIDE [Concomitant]
  9. DOCTAXEL [Concomitant]
  10. GEMCITABINE [Concomitant]
  11. VINORELBINE TARTRATE [Concomitant]

REACTIONS (4)
  - DEPRESSED LEVEL OF CONSCIOUSNESS [None]
  - INTERSTITIAL LUNG DISEASE [None]
  - PNEUMOTHORAX [None]
  - RESPIRATORY FAILURE [None]
